FAERS Safety Report 9243221 (Version 1)
Quarter: 2013Q2

REPORT INFORMATION
  Report Type: Spontaneous
  Country: DE (occurrence: DE)
  Receive Date: 20130419
  Receipt Date: 20130419
  Transmission Date: 20140414
  Serious: Yes (Hospitalization)
  Sender: FDA-Public Use
  Company Number: DE-ASTRAZENECA-2013SE25082

PATIENT
  Age: 55 Year
  Sex: Female

DRUGS (10)
  1. SEROQUEL PROLONG [Suspect]
     Route: 048
     Dates: start: 20121229, end: 20130129
  2. SEROQUEL PROLONG [Interacting]
     Route: 048
     Dates: start: 20130130, end: 20130205
  3. SEROQUEL PROLONG [Interacting]
     Route: 048
     Dates: start: 20130206
  4. ABILIFY [Interacting]
     Route: 048
     Dates: start: 20130102, end: 20130122
  5. ABILIFY [Interacting]
     Route: 048
     Dates: start: 20130123
  6. ENALAPRIL [Concomitant]
     Route: 048
     Dates: start: 20100110
  7. PANTOZOL [Concomitant]
     Route: 048
     Dates: start: 20100101
  8. KALIUMJODID [Concomitant]
     Route: 048
     Dates: start: 20101001
  9. BECLOMETASON [Concomitant]
     Route: 048
     Dates: start: 20101001
  10. FORMOTEROL [Concomitant]

REACTIONS (2)
  - Drug interaction [Unknown]
  - Akathisia [Recovered/Resolved]
